FAERS Safety Report 16216808 (Version 1)
Quarter: 2019Q2

REPORT INFORMATION
  Report Type: Spontaneous
  Country: ES (occurrence: ES)
  Receive Date: 20190419
  Receipt Date: 20190419
  Transmission Date: 20190711
  Serious: Yes (Life-Threatening, Hospitalization, Other)
  Sender: FDA-Public Use
  Company Number: ES-ACCORD-123251

PATIENT
  Age: 71 Year
  Sex: Male

DRUGS (6)
  1. PENTOXIFYLLINE. [Concomitant]
     Active Substance: PENTOXIFYLLINE
     Indication: INTERMITTENT CLAUDICATION
     Dosage: 400 MG / 8 H
  2. ACETYLSALICYLIC ACID [Concomitant]
     Active Substance: ASPIRIN
     Indication: INTERMITTENT CLAUDICATION
     Dosage: 100 MG / 24 H
  3. METFORMIN [Concomitant]
     Active Substance: METFORMIN HYDROCHLORIDE
     Indication: TYPE 2 DIABETES MELLITUS
     Dosage: 850 MG / 8 H
  4. FOLIC ACID. [Concomitant]
     Active Substance: FOLIC ACID
     Dosage: 5 MG / WEEKLY
  5. METHOTREXATE. [Suspect]
     Active Substance: METHOTREXATE
     Indication: PITYRIASIS LICHENOIDES ET VARIOLIFORMIS ACUTA
  6. SIMVASTATIN. [Concomitant]
     Active Substance: SIMVASTATIN
     Indication: DYSLIPIDAEMIA
     Dosage: 40 MG / 24 H

REACTIONS (16)
  - Alopecia [Unknown]
  - Enterococcal infection [Recovered/Resolved]
  - Odynophagia [Recovered/Resolved]
  - Folate deficiency [Unknown]
  - Intentional product use issue [Unknown]
  - Stomatitis [Recovered/Resolved]
  - Bundle branch block [Unknown]
  - Pulmonary granuloma [Unknown]
  - Off label use [Unknown]
  - Diarrhoea haemorrhagic [Recovered/Resolved]
  - Asthenia [Recovered/Resolved]
  - Clostridium difficile infection [Recovered/Resolved]
  - Pancytopenia [Recovered/Resolved]
  - Toxicity to various agents [Unknown]
  - Mucosal inflammation [Recovered/Resolved]
  - Pleural effusion [Unknown]
